FAERS Safety Report 9181267 (Version 1)
Quarter: 2013Q1

REPORT INFORMATION
  Report Type: Spontaneous
  Country: US (occurrence: US)
  Receive Date: 20130322
  Receipt Date: 20130322
  Transmission Date: 20140127
  Serious: Yes (Other)
  Sender: FDA-Public Use
  Company Number: US-PFIZER INC-2013092592

PATIENT
  Age: 69 Year
  Sex: Male
  Weight: 88.89 kg

DRUGS (3)
  1. GABAPENTIN [Suspect]
     Indication: SCIATICA
     Dosage: 600 MG, 3X/DAY
     Dates: start: 20130301
  2. FLECAINIDE [Concomitant]
     Indication: HYPERTENSION
     Dosage: UNK
  3. FLECAINIDE [Concomitant]
     Indication: ATRIAL FIBRILLATION

REACTIONS (2)
  - Angioedema [Unknown]
  - Convulsion [Unknown]
